FAERS Safety Report 24752365 (Version 1)
Quarter: 2024Q4

REPORT INFORMATION
  Report Type: Spontaneous
  Country: US (occurrence: US)
  Receive Date: 20241219
  Receipt Date: 20241219
  Transmission Date: 20250114
  Serious: Yes (Other)
  Sender: ASTELLAS
  Company Number: US-ASTELLAS-2024-AER-025268

PATIENT
  Age: 16 Year
  Sex: Female

DRUGS (1)
  1. VYLOY [Suspect]
     Active Substance: ZOLBETUXIMAB-CLZB
     Indication: Product used for unknown indication
     Dosage: STARTED AT INITIAL RATE AND INCREASED EVERY 30 MIN UNTIL HER MAX RATE OF 80CC/HR
     Route: 050
     Dates: start: 20241209

REACTIONS (3)
  - Orthostatic hypotension [Recovering/Resolving]
  - Retching [Unknown]
  - Abdominal discomfort [Unknown]

NARRATIVE: CASE EVENT DATE: 20241209
